FAERS Safety Report 22201735 (Version 1)
Quarter: 2023Q2

REPORT INFORMATION
  Report Type: Spontaneous
  Country: US (occurrence: None)
  Receive Date: 20230411
  Receipt Date: 20230411
  Transmission Date: 20230721
  Serious: Yes (Hospitalization)
  Sender: FDA-Public Use
  Company Number: None

PATIENT
  Age: 7 Year
  Sex: Male
  Weight: 19.16 kg

DRUGS (1)
  1. VEDOLIZUMAB [Suspect]
     Active Substance: VEDOLIZUMAB
     Indication: Colitis ulcerative
     Dosage: OTHER FREQUENCY : EVERY 8 WEEKS;?
     Route: 042

REACTIONS (11)
  - Pyrexia [None]
  - Headache [None]
  - Rhinorrhoea [None]
  - Abdominal pain [None]
  - Arthralgia [None]
  - Vomiting [None]
  - Blood bicarbonate decreased [None]
  - Viral infection [None]
  - Respiratory symptom [None]
  - Oxygen saturation decreased [None]
  - Infusion related reaction [None]

NARRATIVE: CASE EVENT DATE: 20230213
